FAERS Safety Report 7747092-X (Version None)
Quarter: 2011Q3

REPORT INFORMATION
  Report Type: 
  Country: None (occurrence: None)
  Receive Date: 20110913
  Receipt Date: 20110912
  Transmission Date: 20111222
  Serious: Yes (Death, Hospitalization, Other)
  Sender: FDA-Public Use
  Company Number: PHHY2011NL77030

PATIENT
  Sex: Female

DRUGS (9)
  1. ARIMIDEX [Concomitant]
     Dosage: UNK
     Route: 065
  2. ACETOSAL [Concomitant]
     Dosage: 80 MG, QD
  3. EFFEXOR [Concomitant]
     Dosage: UNK UKN, UNK
     Route: 065
  4. PLAVIX [Concomitant]
     Dosage: 75 MG,
     Route: 065
  5. ZOMETA [Suspect]
     Dosage: 4 MG/5 ML,1X PER 28 DAYS
     Dates: start: 20110721
  6. ZOMETA [Suspect]
     Dosage: 4 MG/5 ML,1X PER 28 DAYS
     Dates: start: 20110829
  7. CORTICOSTEROIDS [Concomitant]
     Dosage: UNK UKN, UNK
  8. TRAMADOL HCL [Concomitant]
     Dosage: 2X50MG
     Route: 065
  9. ZOMETA [Suspect]
     Indication: BREAST CANCER METASTATIC
     Dosage: 4 MG/5 ML,1X PER 28 DAYS
     Dates: start: 20110328

REACTIONS (11)
  - MUSCULOSKELETAL PAIN [None]
  - BURSITIS [None]
  - NEOPLASM PROGRESSION [None]
  - FATIGUE [None]
  - CARDIAC FAILURE [None]
  - NEOPLASM MALIGNANT [None]
  - DEHYDRATION [None]
  - DYSPNOEA [None]
  - METASTASES TO ABDOMINAL WALL [None]
  - PAIN IN EXTREMITY [None]
  - SLEEP DISORDER [None]
